FAERS Safety Report 19682339 (Version 1)
Quarter: 2021Q3

REPORT INFORMATION
  Report Type: Report from Study
  Country: US (occurrence: US)
  Receive Date: 20210811
  Receipt Date: 20210811
  Transmission Date: 20211014
  Serious: No
  Sender: FDA-Public Use
  Company Number: US-SUNOVION-2018SUN005150

PATIENT
  Sex: Female

DRUGS (1)
  1. LATUDA [Suspect]
     Active Substance: LURASIDONE HYDROCHLORIDE
     Dosage: UNK
     Route: 048

REACTIONS (6)
  - Mood swings [Unknown]
  - Panic attack [Unknown]
  - Irritability [Unknown]
  - Crying [Unknown]
  - Paradoxical drug reaction [Unknown]
  - Aggression [Unknown]
